FAERS Safety Report 10429691 (Version 4)
Quarter: 2014Q3

REPORT INFORMATION
  Report Type: Spontaneous
  Country: AU (occurrence: AU)
  Receive Date: 20140904
  Receipt Date: 20140929
  Transmission Date: 20150326
  Serious: Yes (Other)
  Sender: FDA-Public Use
  Company Number: PHHY2014AU111222

PATIENT
  Age: 36 Year
  Sex: Male
  Weight: 65 kg

DRUGS (4)
  1. OSTELIN [Concomitant]
     Active Substance: ERGOCALCIFEROL
     Indication: OSTEOPOROSIS
     Dosage: 1000 UG, DAILY
     Route: 048
  2. DESFERAL [Suspect]
     Active Substance: DEFEROXAMINE MESYLATE
     Indication: THALASSAEMIA BETA
     Dosage: UNK UKN, UNK
  3. DEFERIPRONE [Concomitant]
     Active Substance: DEFERIPRONE
     Indication: IRON OVERLOAD
     Dosage: 4.5 G, DAILY
     Route: 048
     Dates: start: 2003
  4. DESFERAL [Suspect]
     Active Substance: DEFEROXAMINE MESYLATE
     Indication: IRON OVERLOAD
     Dosage: 3 G, EVERY 2 WEEKS
     Route: 058
     Dates: start: 1983

REACTIONS (7)
  - Rash [Recovered/Resolved]
  - Influenza like illness [Recovering/Resolving]
  - Rash erythematous [Recovered/Resolved]
  - Hepatic enzyme increased [Recovering/Resolving]
  - Urticaria [Recovered/Resolved]
  - Rash papular [Recovered/Resolved]
  - Blister [Recovered/Resolved]

NARRATIVE: CASE EVENT DATE: 20140901
